FAERS Safety Report 20748948 (Version 4)
Quarter: 2022Q2

REPORT INFORMATION
  Report Type: Spontaneous
  Country: US (occurrence: US)
  Receive Date: 20220426
  Receipt Date: 20220527
  Transmission Date: 20220720
  Serious: No
  Sender: FDA-Public Use
  Company Number: US-AMGEN-USASP2022069581

PATIENT
  Age: 68 Year
  Sex: Female
  Weight: 78.005 kg

DRUGS (2)
  1. NEULASTA [Suspect]
     Active Substance: PEGFILGRASTIM
     Indication: Pancreatic carcinoma
     Dosage: 6 MILLIGRAM, Q3WK
     Route: 065
     Dates: start: 20220224
  2. NEULASTA [Suspect]
     Active Substance: PEGFILGRASTIM
     Dosage: 6 MILLIGRAM, Q3WK
     Route: 065
     Dates: start: 20220224

REACTIONS (2)
  - Device issue [Unknown]
  - Device malfunction [Unknown]

NARRATIVE: CASE EVENT DATE: 20220224
